FAERS Safety Report 22255319 (Version 3)
Quarter: 2023Q4

REPORT INFORMATION
  Report Type: Report from Study
  Country: US (occurrence: US)
  Receive Date: 20230426
  Receipt Date: 20231207
  Transmission Date: 20240109
  Serious: Yes (Other)
  Sender: FDA-Public Use
  Company Number: US-UCBSA-2022068824

PATIENT
  Sex: Male

DRUGS (5)
  1. CERTOLIZUMAB PEGOL [Suspect]
     Active Substance: CERTOLIZUMAB PEGOL
     Indication: Ankylosing spondylitis
     Dosage: 400 MILLIGRAM, EV 2 WEEKS(QOW)
     Route: 058
     Dates: start: 20221026
  2. CERTOLIZUMAB PEGOL [Suspect]
     Active Substance: CERTOLIZUMAB PEGOL
     Indication: Rheumatoid arthritis
     Dosage: 400 MILLIGRAM, EV 4 WEEKS
     Route: 058
  3. CERTOLIZUMAB PEGOL [Suspect]
     Active Substance: CERTOLIZUMAB PEGOL
     Indication: Ankylosing spondylitis
     Dosage: 400 MILLIGRAM (2X200 MG/ML) AT WEEKS 0, 2,4
     Route: 058
     Dates: start: 2023
  4. CERTOLIZUMAB PEGOL [Suspect]
     Active Substance: CERTOLIZUMAB PEGOL
     Dosage: 400 MILLIGRAM (2X200 MG/ML) EVERY 4 WEEKS
     Route: 058
     Dates: start: 2023
  5. CELEBREX [Concomitant]
     Active Substance: CELECOXIB
     Indication: Product used for unknown indication
     Dosage: UNK

REACTIONS (7)
  - Ankylosing spondylitis [Recovered/Resolved]
  - Pruritus [Recovered/Resolved]
  - Burning sensation [Recovering/Resolving]
  - Therapeutic product effect incomplete [Unknown]
  - Therapy interrupted [Unknown]
  - Insurance issue [Unknown]
  - Product distribution issue [Unknown]

NARRATIVE: CASE EVENT DATE: 20230101
